FAERS Safety Report 6785961-8 (Version None)
Quarter: 2010Q2

REPORT INFORMATION
  Report Type: 
  Country: None (occurrence: None)
  Receive Date: 20100623
  Receipt Date: 20100616
  Transmission Date: 20101027
  Serious: Yes (Other)
  Sender: FDA-Public Use
  Company Number: JP-JNJFOC-20100305756

PATIENT
  Sex: Male
  Weight: 63 kg

DRUGS (5)
  1. ITRIZOLE [Suspect]
     Indication: ONYCHOMYCOSIS
     Route: 048
  2. BENIDIPINE HYDROCHLORIDE [Concomitant]
     Route: 031
  3. LOSARTAN [Concomitant]
     Indication: GLAUCOMA
     Route: 031
  4. CONIEL [Concomitant]
     Indication: HYPERTENSION
     Route: 048
  5. RENIVACE [Concomitant]
     Indication: HYPERTENSION
     Route: 048

REACTIONS (4)
  - BLOOD PRESSURE INCREASED [None]
  - INTRAOCULAR PRESSURE INCREASED [None]
  - NAUSEA [None]
  - SENSATION OF HEAVINESS [None]
